FAERS Safety Report 6368207-4 (Version None)
Quarter: 2009Q3

REPORT INFORMATION
  Report Type: 
  Country: None (occurrence: None)
  Receive Date: 20090922
  Receipt Date: 20090905
  Transmission Date: 20100115
  Serious: Yes (Death, Other)
  Sender: FDA-Public Use
  Company Number: US-BAYER-200931251GPV

PATIENT
  Age: 48 Year
  Sex: Female

DRUGS (6)
  1. AVELOX [Suspect]
     Indication: PULMONARY TUBERCULOSIS
  2. ISONIAZID PLACEBO [Concomitant]
     Indication: PULMONARY TUBERCULOSIS
  3. RIFAMPICIN [Concomitant]
     Indication: PULMONARY TUBERCULOSIS
  4. PYRAZINAMIDE [Concomitant]
     Indication: PULMONARY TUBERCULOSIS
  5. ETHAMBUTOL [Concomitant]
     Indication: PULMONARY TUBERCULOSIS
  6. PYRIDOXINE [Concomitant]
     Indication: PULMONARY TUBERCULOSIS

REACTIONS (2)
  - DIABETIC KETOACIDOSIS [None]
  - PULMONARY EMBOLISM [None]
